FAERS Safety Report 9007448 (Version 2)
Quarter: 2013Q2

REPORT INFORMATION
  Report Type: Spontaneous
  Country: US (occurrence: US)
  Receive Date: 20130110
  Receipt Date: 20130612
  Transmission Date: 20140414
  Serious: Yes (Death)
  Sender: FDA-Public Use
  Company Number: US-GILEAD-2013-0067570

PATIENT
  Sex: Female

DRUGS (3)
  1. LETAIRIS [Suspect]
     Indication: PULMONARY HYPERTENSION
     Dosage: 5 MG, QD
     Route: 048
     Dates: start: 20110712, end: 201211
  2. LETAIRIS [Suspect]
     Indication: CARDIAC FAILURE HIGH OUTPUT
  3. LETAIRIS [Suspect]
     Indication: HEPATIC CIRRHOSIS

REACTIONS (3)
  - Sickle cell anaemia with crisis [Fatal]
  - Septic shock [Fatal]
  - Renal failure chronic [Fatal]
